FAERS Safety Report 4752741-4 (Version None)
Quarter: 2005Q3

REPORT INFORMATION
  Report Type: 
  Country: None (occurrence: None)
  Receive Date: 20050823
  Receipt Date: 20050309
  Transmission Date: 20060218
  Serious: Yes (Death, Life-Threatening)
  Sender: FDA-Public Use
  Company Number: 2005036653

PATIENT
  Age: 75 Year
  Sex: Male

DRUGS (7)
  1. VFEND [Suspect]
     Indication: PNEUMONIA FUNGAL
     Dosage: SEE IMAGE
     Route: 042
     Dates: start: 20040430, end: 20040519
  2. VFEND [Suspect]
     Indication: PNEUMONIA FUNGAL
     Dosage: SEE IMAGE
     Route: 042
     Dates: start: 20040519, end: 20040531
  3. LISINOPRIL [Concomitant]
  4. ATENOLOL [Concomitant]
  5. VIOXX [Concomitant]
  6. SERTRALINE HCL [Concomitant]
  7. FLOMAX ^BOEHRINGER INGELHEIM^ (TAMSULOSIN HYDROCHLORIDE) [Concomitant]

REACTIONS (1)
  - STEVENS-JOHNSON SYNDROME [None]
